FAERS Safety Report 17145701 (Version 1)
Quarter: 2019Q4

REPORT INFORMATION
  Report Type: Spontaneous
  Country: US (occurrence: US)
  Receive Date: 20191120
  Receipt Date: 20191120
  Transmission Date: 20200122
  Serious: No
  Sender: FDA-Public Use
  Company Number: None

PATIENT
  Age: 59 Year
  Sex: Male

DRUGS (6)
  1. ANASTROZOLE. [Concomitant]
     Active Substance: ANASTROZOLE
  2. FINASTERIDE. [Concomitant]
     Active Substance: FINASTERIDE
  3. NP THYROID [Suspect]
     Active Substance: LEVOTHYROXINE\LIOTHYRONINE
  4. TADALAFIL. [Concomitant]
     Active Substance: TADALAFIL
  5. TESTOST  CYP [Concomitant]
     Active Substance: TESTOSTERONE CYPIONATE
  6. NINLARO [Suspect]
     Active Substance: IXAZOMIB CITRATE
     Indication: PLASMA CELL MYELOMA
     Dosage: ?          OTHER FREQUENCY:Q 7 DAYS ;?
     Route: 048
     Dates: start: 20180202

REACTIONS (2)
  - Fatigue [None]
  - Off label use [None]

NARRATIVE: CASE EVENT DATE: 20191119
